FAERS Safety Report 5008881-8 (Version None)
Quarter: 2006Q2

REPORT INFORMATION
  Report Type: 
  Country: None (occurrence: None)
  Receive Date: 20060519
  Receipt Date: 20060518
  Transmission Date: 20061013
  Serious: Yes (Death)
  Sender: FDA-Public Use
  Company Number: 2006-085DP

PATIENT
  Age: 55 Year
  Sex: Male

DRUGS (3)
  1. DEPAKOTE [Suspect]
     Indication: CONVULSION
  2. DILANTIN [Concomitant]
  3. GINKGO BILOBA [Concomitant]

REACTIONS (2)
  - ANTICONVULSANT DRUG LEVEL BELOW THERAPEUTIC [None]
  - CONVULSION [None]
